FAERS Safety Report 25457654 (Version 1)
Quarter: 2025Q2

REPORT INFORMATION
  Report Type: Spontaneous
  Country: RO (occurrence: RO)
  Receive Date: 20250619
  Receipt Date: 20250619
  Transmission Date: 20250716
  Serious: Yes (Other)
  Sender: ASTELLAS
  Company Number: RO-ASTELLAS-2025-AER-032004

PATIENT
  Age: 41 Year
  Sex: Male

DRUGS (4)
  1. GILTERITINIB [Suspect]
     Active Substance: GILTERITINIB
     Indication: Acute myelomonocytic leukaemia
     Dosage: STOP
     Route: 065
     Dates: start: 20250404, end: 2025
  2. GILTERITINIB [Suspect]
     Active Substance: GILTERITINIB
     Dosage: LOW DOSES
     Route: 065
     Dates: start: 2025, end: 2025
  3. GILTERITINIB [Suspect]
     Active Substance: GILTERITINIB
     Dosage: RESUMED
     Route: 065
     Dates: start: 2025, end: 2025
  4. GILTERITINIB [Suspect]
     Active Substance: GILTERITINIB
     Dosage: RESUME AND AFTER 3 DAYS STOP
     Route: 065
     Dates: start: 2025, end: 2025

REACTIONS (18)
  - Febrile neutropenia [Unknown]
  - Pericarditis [Unknown]
  - Bone abscess [Unknown]
  - Electrocardiogram QT prolonged [Recovering/Resolving]
  - Differentiation syndrome [Unknown]
  - Haemophagocytic lymphohistiocytosis [Unknown]
  - Pancreatitis acute [Unknown]
  - Oral candidiasis [Unknown]
  - Bone lesion [Unknown]
  - General physical condition abnormal [Recovering/Resolving]
  - Hypotension [Unknown]
  - Bradyphrenia [Unknown]
  - Slow speech [Unknown]
  - Somnolence [Unknown]
  - Generalised oedema [Unknown]
  - Dyspnoea [Unknown]
  - Leukocytosis [Unknown]
  - Neutrophilia [Unknown]

NARRATIVE: CASE EVENT DATE: 20250101
